FAERS Safety Report 7979273-4 (Version None)
Quarter: 2011Q4

REPORT INFORMATION
  Report Type: 
  Country: None (occurrence: None)
  Receive Date: 20111214
  Receipt Date: 20111214
  Transmission Date: 20120403
  Serious: No
  Sender: FDA-Public Use
  Company Number: None

PATIENT
  Age: 47 Year
  Sex: Female
  Weight: 96.615 kg

DRUGS (1)
  1. EFFEXOR XR [Suspect]
     Indication: DEPRESSION
     Dosage: 150
     Route: 048
     Dates: start: 20051201, end: 20111213

REACTIONS (2)
  - PRODUCT SUBSTITUTION ISSUE [None]
  - DRUG WITHDRAWAL SYNDROME [None]
